FAERS Safety Report 4437356-X (Version None)
Quarter: 2004Q3

REPORT INFORMATION
  Report Type: 
  Country: None (occurrence: None)
  Receive Date: 20040726
  Receipt Date: 20040507
  Transmission Date: 20050211
  Serious: No
  Sender: FDA-Public Use
  Company Number: USA040363334

PATIENT
  Age: 77 Year
  Sex: Female
  Weight: 68 kg

DRUGS (6)
  1. FORTEO [Suspect]
     Indication: OSTEOPOROSIS
     Dosage: 20 UG/1 DAY
     Dates: start: 20040301
  2. NEURONTIN [Concomitant]
  3. ASPIRIN [Concomitant]
  4. MOTRIN [Concomitant]
  5. SANDOSTATIN [Concomitant]
  6. ENALAPRIL [Concomitant]

REACTIONS (5)
  - ACCIDENTAL OVERDOSE [None]
  - DIZZINESS [None]
  - ESCHERICHIA INFECTION [None]
  - MEDICATION ERROR [None]
  - SENSORY DISTURBANCE [None]
